FAERS Safety Report 6207605-6 (Version None)
Quarter: 2009Q2

REPORT INFORMATION
  Report Type: 
  Country: None (occurrence: None)
  Receive Date: 20090528
  Receipt Date: 20090525
  Transmission Date: 20091009
  Serious: Yes (Other)
  Sender: FDA-Public Use
  Company Number: US-B.I. PHARMACEUTICALS,INC./RIDGEFIELD-2009-BP-06506YA

PATIENT
  Sex: Male
  Weight: 73.47 kg

DRUGS (6)
  1. TAMSULOSIN HCL [Suspect]
     Route: 048
  2. LIPITOR [Suspect]
     Indication: BLOOD CHOLESTEROL INCREASED
     Dosage: 40MG
     Route: 048
  3. LIPITOR [Suspect]
     Dosage: 20MG
     Route: 048
  4. LIPITOR [Suspect]
     Dosage: 10MG
     Route: 048
  5. CAFFEINE [Suspect]
     Route: 048
  6. ETHANOL [Suspect]
     Route: 048

REACTIONS (5)
  - DRUG INTERACTION [None]
  - DYSURIA [None]
  - MUSCLE SPASMS [None]
  - MYALGIA [None]
  - PROSTATOMEGALY [None]
